FAERS Safety Report 7774264 (Version 2)
Quarter: 2014Q1

REPORT INFORMATION
  Report Type: Spontaneous
  Country: US (occurrence: US)
  Receive Date: 20110126
  Receipt Date: 20140116
  Transmission Date: 20141002
  Serious: Yes (Other)
  Sender: FDA-Public Use
  Company Number: US-BAYER-2011-007368

PATIENT
  Age: 25 Year
  Sex: Female

DRUGS (4)
  1. YASMIN [Suspect]
     Indication: PRODUCT USED FOR UNKNOWN INDICATION
     Dosage: UNK
     Dates: start: 200807, end: 200910
  2. OCELLA [Suspect]
     Indication: PRODUCT USED FOR UNKNOWN INDICATION
     Dosage: UNK
     Dates: start: 200807, end: 200910
  3. NEXIUM [Concomitant]
     Dosage: 40 MG, UNK
  4. BUSPIRONE HYDROCHLORIDE [Concomitant]
     Dosage: 5 MG, UNK

REACTIONS (4)
  - Cholelithiasis [None]
  - Injury [None]
  - Pain [None]
  - Cholecystitis chronic [None]
